FAERS Safety Report 7300431-6 (Version None)
Quarter: 2011Q1

REPORT INFORMATION
  Report Type: 
  Country: None (occurrence: None)
  Receive Date: 20110217
  Receipt Date: 20110214
  Transmission Date: 20110831
  Serious: Yes (Death, Other)
  Sender: FDA-Public Use
  Company Number: PHHY2010US80017

PATIENT
  Sex: Male

DRUGS (1)
  1. ZOMETA [Suspect]
     Dosage: UNK
     Route: 042
     Dates: start: 20100903

REACTIONS (4)
  - DEATH [None]
  - WEIGHT DECREASED [None]
  - URTICARIA [None]
  - OEDEMA PERIPHERAL [None]
